FAERS Safety Report 10795028 (Version 1)
Quarter: 2015Q1

REPORT INFORMATION
  Report Type: Spontaneous
  Country: US (occurrence: US)
  Receive Date: 20150214
  Receipt Date: 20150214
  Transmission Date: 20150721
  Serious: No
  Sender: FDA-Public Use
  Company Number: US-GLAXOSMITHKLINE-A1070794A

PATIENT

DRUGS (1)
  1. NICODERM CQ [Suspect]
     Active Substance: NICOTINE
     Indication: EX-TOBACCO USER
     Dates: start: 201404

REACTIONS (8)
  - Adverse reaction [Not Recovered/Not Resolved]
  - Application site reaction [Unknown]
  - Application site irritation [Not Recovered/Not Resolved]
  - Application site hypoaesthesia [Not Recovered/Not Resolved]
  - Hypoaesthesia [Unknown]
  - Chest discomfort [Unknown]
  - Sensory disturbance [Unknown]
  - Application site paraesthesia [Not Recovered/Not Resolved]
